FAERS Safety Report 9159604 (Version 1)
Quarter: 2013Q1

REPORT INFORMATION
  Report Type: Spontaneous
  Country: GB (occurrence: None)
  Receive Date: 20130214
  Receipt Date: 20130214
  Transmission Date: 20140127
  Serious: Yes (Other)
  Sender: FDA-Public Use
  Company Number: GER/UKI/13/0027948

PATIENT
  Age: 76 Year
  Sex: Male
  Weight: 64.8 kg

DRUGS (8)
  1. RIVASTIGMINE [Suspect]
     Indication: PRODUCT USED FOR UNKNOWN INDICATION
     Dates: start: 20121127
  2. AZATHIOPRINE (AZATHIOPRINE) [Concomitant]
  3. CALCEOS (LEKOVI CA) [Concomitant]
  4. CITALOPRAM (CITALOPRAM) [Concomitant]
  5. DIPROBASE (DIPROBASE) [Concomitant]
  6. HYPROMELLOSE (HYPROMELLOSE) [Concomitant]
  7. INFLUENZA VIRUS (INFLUENZA VACCINE) [Concomitant]
  8. LANSOPRAZOLE (LANSOPRAZOLE) [Concomitant]

REACTIONS (2)
  - Colitis ulcerative [None]
  - Condition aggravated [None]
